FAERS Safety Report 15454441 (Version 3)
Quarter: 2018Q4

REPORT INFORMATION
  Report Type: Report from Study
  Country: None (occurrence: NL)
  Receive Date: 20181002
  Receipt Date: 20181130
  Transmission Date: 20190204
  Serious: Yes (Hospitalization, Other)
  Sender: FDA-Public Use
  Company Number: NL-ABBVIE-18P-114-2494517-00

PATIENT
  Age: 66 Year
  Sex: Male

DRUGS (2)
  1. VENETOCLAX. [Suspect]
     Active Substance: VENETOCLAX
     Indication: CHRONIC LYMPHOCYTIC LEUKAEMIA
     Route: 048
     Dates: start: 20180404, end: 20180513
  2. IBRUTINIB [Suspect]
     Active Substance: IBRUTINIB
     Indication: CHRONIC LYMPHOCYTIC LEUKAEMIA
     Route: 048
     Dates: start: 20180207, end: 20180513

REACTIONS (3)
  - Pyrexia [Not Recovered/Not Resolved]
  - Postoperative wound infection [Recovered/Resolved]
  - Richter^s syndrome [Unknown]

NARRATIVE: CASE EVENT DATE: 20180513
